FAERS Safety Report 9728703 (Version 5)
Quarter: 2014Q1

REPORT INFORMATION
  Report Type: Spontaneous
  Country: GB (occurrence: GB)
  Receive Date: 20131204
  Receipt Date: 20140115
  Transmission Date: 20141002
  Serious: Yes (Hospitalization, Other)
  Sender: FDA-Public Use
  Company Number: GB-PFIZER INC-2013344365

PATIENT
  Age: 41 Year
  Sex: Female

DRUGS (9)
  1. RAMIPRIL [Suspect]
     Dosage: ONCE
     Route: 048
     Dates: start: 20131027, end: 20131027
  2. RAMIPRIL [Suspect]
     Dosage: 1 IN 1 TOTAL
     Route: 048
     Dates: start: 20131027, end: 20131027
  3. OLANZAPINE [Suspect]
     Dosage: ONCE
     Route: 065
     Dates: start: 20131027, end: 20131027
  4. OLANZAPINE [Suspect]
     Dosage: 1 IN 1 ONCE
     Route: 065
     Dates: start: 20131027, end: 20131027
  5. CLOZARIL [Suspect]
     Indication: SCHIZOPHRENIA
     Dosage: UNK
     Route: 048
     Dates: start: 20131011, end: 20131027
  6. IBUPROFEN [Suspect]
     Dosage: ONCE
     Route: 065
     Dates: start: 20131027, end: 20131027
  7. IBUPROFEN [Suspect]
     Dosage: 1 IN 1 TOTAL
     Route: 065
     Dates: start: 20131027, end: 20131027
  8. PARACETAMOL [Suspect]
     Dosage: UNK
     Route: 065
     Dates: start: 20131027, end: 20131027
  9. PARACETAMOL [Suspect]
     Dosage: 1 IN 1 TOTAL
     Route: 065
     Dates: start: 20131027, end: 20131027

REACTIONS (7)
  - Overdose [Unknown]
  - Blood pressure increased [Unknown]
  - Tachycardia [Unknown]
  - Abnormal clotting factor [Recovered/Resolved]
  - Hepatic function abnormal [Recovered/Resolved]
  - Neutrophil count increased [Unknown]
  - White blood cell count increased [Unknown]
